FAERS Safety Report 5064931-4 (Version None)
Quarter: 2006Q3

REPORT INFORMATION
  Report Type: 
  Country: None (occurrence: None)
  Receive Date: 20060726
  Receipt Date: 20060714
  Transmission Date: 20061208
  Serious: Yes (Death)
  Sender: FDA-Public Use
  Company Number: 2005070432

PATIENT
  Age: 77 Year
  Sex: Male

DRUGS (22)
  1. ATORVASTATIN CALCIUM [Suspect]
     Indication: ILL-DEFINED DISORDER
     Dosage: 10 MG DAILY
  2. LACTULOSE [Suspect]
     Indication: ILL-DEFINED DISORDER
     Dosage: 3.35G/5 ML DAILY
  3. SPIRONOLACTONE [Suspect]
     Indication: ILL-DEFINED DISORDER
     Dosage: 50 MG
  4. TEMAZEPAM [Suspect]
     Indication: ILL-DEFINED DISORDER
     Dosage: 10 MG 1 - 2 NIGHTLY
  5. COMBIVENT [Suspect]
     Indication: CHRONIC OBSTRUCTIVE PULMONARY DISEASE
     Dosage: 4 IN 1 D INHALATION
     Route: 055
     Dates: start: 20030617, end: 20040513
  6. DILTIAZEM [Suspect]
     Indication: ILL-DEFINED DISORDER
  7. SALBUTAMOL (SALBUTAMOL) [Concomitant]
  8. ASPIRIN [Concomitant]
  9. BECLOMETHASONE (BECLOMETASONE) [Concomitant]
  10. FRUMIL (AMILORIDE HYDROCHLORIDE, FUROSEMIDE) [Concomitant]
  11. DEXAMETHASONE [Concomitant]
  12. DOSULEPIN (DOSULEPIN) [Concomitant]
  13. FUROSEMIDE [Concomitant]
  14. GAVISCON [Concomitant]
  15. LANSOPRAZOLE [Concomitant]
  16. METOCLOPRAMIDE [Concomitant]
  17. NITROGLYCERIN [Concomitant]
  18. METHOTRIMEPRAZINE (LEVOMEPROMAZINE) [Concomitant]
  19. OXYCODONE (OXYCODONE) [Concomitant]
  20. OXYGEN (OXYGEN) [Concomitant]
  21. SYMBICORT (BUDESONIDE, FORMOTEROL FUMARATE) [Concomitant]
  22. SPIRIVA [Concomitant]

REACTIONS (2)
  - LUNG NEOPLASM MALIGNANT [None]
  - MESOTHELIOMA [None]
